FAERS Safety Report 8492458-6 (Version None)
Quarter: 2012Q3

REPORT INFORMATION
  Report Type: 
  Country: None (occurrence: None)
  Receive Date: 20120706
  Receipt Date: 20120621
  Transmission Date: 20120928
  Serious: Yes (Hospitalization)
  Sender: FDA-Public Use
  Company Number: JP-ROCHE-1081851

PATIENT
  Weight: 55.2 kg

DRUGS (4)
  1. PERTUZUMAB [Suspect]
     Route: 042
     Dates: end: 20120507
  2. TRASTUZUMAB EMTANSINE [Suspect]
     Indication: BREAST CANCER
     Route: 042
     Dates: start: 20090906, end: 20120507
  3. MOMETASONE FUROATE OINTMENT [Concomitant]
     Indication: RASH
     Route: 061
     Dates: start: 20120328
  4. PERTUZUMAB [Suspect]
     Indication: BREAST CANCER
     Route: 042
     Dates: start: 20090906, end: 20120507

REACTIONS (1)
  - EPISTAXIS [None]
